FAERS Safety Report 5458504-9 (Version None)
Quarter: 2007Q3

REPORT INFORMATION
  Report Type: 
  Country: None (occurrence: None)
  Receive Date: 20070919
  Receipt Date: 20070404
  Transmission Date: 20080115
  Serious: No
  Sender: FDA-Public Use
  Company Number: US-ASTRAZENECA-2007UW06729

PATIENT
  Age: 31 Year
  Sex: Male
  Weight: 98 kg

DRUGS (4)
  1. SEROQUEL [Suspect]
     Indication: SCHIZOPHRENIA
     Dosage: 400 TO 600 MG
     Route: 048
     Dates: start: 20050101
  2. PROZAC [Concomitant]
  3. ALPRAZOLAM [Concomitant]
  4. CLOZAPINE [Concomitant]

REACTIONS (4)
  - CYSTITIS [None]
  - DIZZINESS [None]
  - FALSE POSITIVE LABORATORY RESULT [None]
  - SOMNOLENCE [None]
